FAERS Safety Report 6780123-2 (Version None)
Quarter: 2010Q2

REPORT INFORMATION
  Report Type: 
  Country: None (occurrence: None)
  Receive Date: 20100618
  Receipt Date: 20100607
  Transmission Date: 20101027
  Serious: Yes (Hospitalization)
  Sender: FDA-Public Use
  Company Number: NL-GILEAD-E2B_00000749

PATIENT
  Sex: Male

DRUGS (2)
  1. AMBRISENTAN [Suspect]
     Indication: PULMONARY ARTERIAL HYPERTENSION
     Dosage: 5MG PER DAY
     Route: 048
     Dates: start: 20091216, end: 20100204
  2. SILDENAFIL [Concomitant]
     Indication: PULMONARY HYPERTENSION
     Dosage: 60MG PER DAY
     Route: 048
     Dates: start: 20090801

REACTIONS (2)
  - FLUID RETENTION [None]
  - RENAL IMPAIRMENT [None]
